FAERS Safety Report 12402621 (Version 3)
Quarter: 2016Q3

REPORT INFORMATION
  Report Type: Spontaneous
  Country: FR (occurrence: FR)
  Receive Date: 20160525
  Receipt Date: 20160706
  Transmission Date: 20161109
  Serious: Yes (Congenital Anomaly, Other)
  Sender: FDA-Public Use
  Company Number: FR-ABBVIE-16P-056-1635251-00

PATIENT
  Sex: Male

DRUGS (1)
  1. DEPAKINE [Suspect]
     Active Substance: VALPROATE SODIUM
     Indication: MATERNAL EXPOSURE TIMING UNSPECIFIED
     Route: 064

REACTIONS (7)
  - Aphasia [Unknown]
  - Learning disorder [Unknown]
  - Foetal exposure during pregnancy [Unknown]
  - Dysplasia [Unknown]
  - Abnormal behaviour [Unknown]
  - Skull malformation [Unknown]
  - Language disorder [Unknown]

NARRATIVE: CASE EVENT DATE: 2005
